FAERS Safety Report 8819845 (Version 9)
Quarter: 2013Q3

REPORT INFORMATION
  Report Type: Report from Study
  Country: CA (occurrence: CA)
  Receive Date: 20121001
  Receipt Date: 20130906
  Transmission Date: 20140515
  Serious: Yes (Other)
  Sender: FDA-Public Use
  Company Number: CA-ROCHE-1073824

PATIENT
  Age: 80 Year
  Sex: Male

DRUGS (13)
  1. ZELBORAF [Suspect]
     Indication: METASTATIC MALIGNANT MELANOMA
     Dosage: THARPY WAS HELD ON 12/JUL/2012
     Route: 048
     Dates: start: 201205
  2. DIAZEPAM [Suspect]
     Indication: PRODUCT USED FOR UNKNOWN INDICATION
     Route: 065
  3. FLOMAX [Concomitant]
  4. PARIET [Concomitant]
  5. LIPITOR [Concomitant]
  6. INDAPAMIDE [Concomitant]
  7. VITAMIN C [Concomitant]
  8. VITAMIN A [Concomitant]
  9. SAW PALMETTO [Concomitant]
     Dosage: INDICATION: PROSTRATE
     Route: 065
  10. CRANBERRY EXTRACT [Concomitant]
  11. TYLENOL [Concomitant]
  12. PLAVIX [Concomitant]
     Route: 065
     Dates: end: 20130304
  13. ASPIRIN [Concomitant]
     Route: 065
     Dates: end: 20130304

REACTIONS (26)
  - Malignant melanoma [Not Recovered/Not Resolved]
  - Squamous cell carcinoma [Unknown]
  - Keratoacanthoma [Unknown]
  - Actinic keratosis [Unknown]
  - Urticaria [Recovering/Resolving]
  - Sunburn [Recovering/Resolving]
  - Rash [Not Recovered/Not Resolved]
  - Haemorrhage [Not Recovered/Not Resolved]
  - Rash erythematous [Not Recovered/Not Resolved]
  - Vomiting [Recovered/Resolved]
  - Fatigue [Not Recovered/Not Resolved]
  - Dyspnoea [Not Recovered/Not Resolved]
  - Mental disorder [Not Recovered/Not Resolved]
  - Mass [Not Recovered/Not Resolved]
  - Suicidal ideation [Not Recovered/Not Resolved]
  - Alopecia [Not Recovered/Not Resolved]
  - General physical health deterioration [Unknown]
  - Memory impairment [Unknown]
  - Somnolence [Unknown]
  - Asthenia [Unknown]
  - Dyspnoea exertional [Unknown]
  - Gingival bleeding [Unknown]
  - Gait disturbance [Not Recovered/Not Resolved]
  - Mobility decreased [Not Recovered/Not Resolved]
  - Disorientation [Not Recovered/Not Resolved]
  - Drug intolerance [Not Recovered/Not Resolved]
